FAERS Safety Report 12264128 (Version 2)
Quarter: 2016Q2

REPORT INFORMATION
  Report Type: Spontaneous
  Country: US (occurrence: US)
  Receive Date: 20160413
  Receipt Date: 20160517
  Transmission Date: 20160815
  Serious: Yes (Other)
  Sender: FDA-Public Use
  Company Number: US-JNJFOC-20160312575

PATIENT
  Sex: Female
  Weight: 88.45 kg

DRUGS (3)
  1. MOTRIN [Suspect]
     Active Substance: IBUPROFEN
     Indication: HEADACHE
     Route: 048
     Dates: start: 2001, end: 2001
  2. MOTRIN [Suspect]
     Active Substance: IBUPROFEN
     Route: 048
  3. ENBREL [Concomitant]
     Active Substance: ETANERCEPT
     Indication: RHEUMATOID ARTHRITIS
     Route: 065
     Dates: start: 2001, end: 2013

REACTIONS (1)
  - Anaphylactic shock [Recovered/Resolved]

NARRATIVE: CASE EVENT DATE: 2001
